FAERS Safety Report 10543227 (Version 1)
Quarter: 2014Q4

REPORT INFORMATION
  Report Type: Spontaneous
  Country: US (occurrence: None)
  Receive Date: 20141024
  Receipt Date: 20141024
  Transmission Date: 20150529
  Serious: No
  Sender: FDA-Public Use
  Company Number: None

PATIENT
  Sex: Female

DRUGS (1)
  1. DOXYCYCLINE HYCLATE. [Suspect]
     Active Substance: DOXYCYCLINE HYCLATE
     Dates: end: 20140920

REACTIONS (3)
  - Oesophagitis [None]
  - Chest pain [None]
  - Foreign body [None]

NARRATIVE: CASE EVENT DATE: 20140920
